FAERS Safety Report 16371063 (Version 1)
Quarter: 2019Q2

REPORT INFORMATION
  Report Type: Spontaneous
  Country: US (occurrence: US)
  Receive Date: 20190423
  Receipt Date: 20190423
  Transmission Date: 20190711
  Serious: Yes (Hospitalization)
  Sender: FDA-Public Use
  Company Number: None

PATIENT
  Age: 66 Year
  Sex: Male

DRUGS (2)
  1. NORTIPTYLINE [Suspect]
     Active Substance: NORTRIPTYLINE
     Indication: PAIN
     Route: 048
     Dates: start: 20160406, end: 20190113
  2. MORPHINE [Suspect]
     Active Substance: MORPHINE
     Indication: PAIN
     Route: 048
     Dates: start: 20190102, end: 20190116

REACTIONS (3)
  - Delirium [None]
  - Acute kidney injury [None]
  - Hallucinations, mixed [None]

NARRATIVE: CASE EVENT DATE: 20190113
